FAERS Safety Report 15069170 (Version 1)
Quarter: 2018Q2

REPORT INFORMATION
  Report Type: Spontaneous
  Country: US (occurrence: US)
  Receive Date: 20180626
  Receipt Date: 20180626
  Transmission Date: 20180711
  Serious: No
  Sender: FDA-Public Use
  Company Number: US-AMGEN-USASP2017114886

PATIENT
  Age: 70 Year
  Sex: Female

DRUGS (4)
  1. NEULASTA [Suspect]
     Active Substance: PEGFILGRASTIM
     Indication: PRODUCT USED FOR UNKNOWN INDICATION
     Dosage: UNK UNK, AFTER CHEMO
     Route: 065
     Dates: start: 20170721
  2. CARBOPLATIN. [Concomitant]
     Active Substance: CARBOPLATIN
     Dosage: UNK
  3. AVASTIN [Concomitant]
     Active Substance: BEVACIZUMAB
     Dosage: UNK
  4. TAXOL [Concomitant]
     Active Substance: PACLITAXEL
     Dosage: UNK

REACTIONS (5)
  - Hypertension [Unknown]
  - Bone pain [Not Recovered/Not Resolved]
  - Abdominal pain [Unknown]
  - Dyspepsia [Unknown]
  - Sleep disorder [Unknown]

NARRATIVE: CASE EVENT DATE: 201707
